FAERS Safety Report 18306776 (Version 1)
Quarter: 2020Q3

REPORT INFORMATION
  Report Type: Spontaneous
  Country: US (occurrence: US)
  Receive Date: 20200923
  Receipt Date: 20200923
  Transmission Date: 20201103
  Serious: No
  Sender: FDA-Public Use
  Company Number: None

PATIENT
  Age: 96 Year
  Sex: Male
  Weight: 60 kg

DRUGS (1)
  1. TRAMADOL (TRAMADOL HCL 50MG TAB (1/2 TAB)) [Suspect]
     Active Substance: TRAMADOL HYDROCHLORIDE
     Indication: PAIN
     Route: 048
     Dates: start: 20200902, end: 20200902

REACTIONS (2)
  - Confusional state [None]
  - Somnolence [None]

NARRATIVE: CASE EVENT DATE: 20200902
